FAERS Safety Report 12418090 (Version 1)
Quarter: 2016Q2

REPORT INFORMATION
  Report Type: Spontaneous
  Country: ES (occurrence: ES)
  Receive Date: 20160531
  Receipt Date: 20160531
  Transmission Date: 20160815
  Serious: Yes (Other)
  Sender: FDA-Public Use
  Company Number: ES-CIPLA LTD.-2016ES05794

PATIENT

DRUGS (21)
  1. OMBITASVIR [Interacting]
     Active Substance: OMBITASVIR
     Indication: CHRONIC HEPATITIS C
     Dosage: 25 MG, QD
     Route: 065
     Dates: start: 20150421
  2. ACENOCOUMAROL [Interacting]
     Active Substance: ACENOCOUMAROL
     Dosage: 19.5 MG/ WEEK
     Route: 065
  3. ACENOCOUMAROL [Interacting]
     Active Substance: ACENOCOUMAROL
     Dosage: 10 MG/ WEEK
     Route: 065
  4. DASABUVIR [Interacting]
     Active Substance: DASABUVIR
     Indication: CHRONIC HEPATITIS C
     Dosage: 250 MG, BID
     Route: 065
     Dates: start: 20150421
  5. ACENOCOUMAROL [Interacting]
     Active Substance: ACENOCOUMAROL
     Dosage: 8 MG/ WEEK
     Route: 065
  6. ACENOCOUMAROL [Interacting]
     Active Substance: ACENOCOUMAROL
     Dosage: 16.5 MG/ WEEK
     Route: 065
  7. ACENOCOUMAROL [Interacting]
     Active Substance: ACENOCOUMAROL
     Indication: ANTICOAGULANT THERAPY
     Dosage: 8 MG TO 9.5 MG/WEEK
     Route: 065
  8. DIGOXIN. [Concomitant]
     Active Substance: DIGOXIN
     Dosage: 0.125 MG, QD
     Route: 065
  9. ACENOCOUMAROL [Interacting]
     Active Substance: ACENOCOUMAROL
     Dosage: 11 MG/ WEEK
  10. BISOPROLOL [Concomitant]
     Active Substance: BISOPROLOL
     Dosage: 2.5 MG, QD
     Route: 065
  11. RITONAVIR. [Suspect]
     Active Substance: RITONAVIR
     Indication: CHRONIC HEPATITIS C
     Dosage: 100 MG, QD
     Route: 065
     Dates: start: 20150421
  12. RIBAVIRIN. [Suspect]
     Active Substance: RIBAVIRIN
     Indication: CHRONIC HEPATITIS C
     Dosage: 400 MG, BID
     Route: 065
     Dates: start: 20150421
  13. ACENOCOUMAROL [Interacting]
     Active Substance: ACENOCOUMAROL
     Dosage: 19 MG/ WEEK
     Route: 065
  14. ACENOCOUMAROL [Interacting]
     Active Substance: ACENOCOUMAROL
     Dosage: UNK
     Route: 065
  15. ACENOCOUMAROL [Interacting]
     Active Substance: ACENOCOUMAROL
     Dosage: 13 MG/WEEK
     Route: 065
  16. OMEPRAZOLE. [Concomitant]
     Active Substance: OMEPRAZOLE
     Dosage: 20 MG, QD
     Route: 065
  17. FUROSEMIDE. [Concomitant]
     Active Substance: FUROSEMIDE
     Dosage: UNK, PRN
     Route: 065
  18. PARITAPREVIR [Interacting]
     Active Substance: PARITAPREVIR
     Indication: CHRONIC HEPATITIS C
     Dosage: 150 MG, QD
     Route: 065
     Dates: start: 20150421
  19. ACENOCOUMAROL [Interacting]
     Active Substance: ACENOCOUMAROL
     Dosage: 20.5 MG/ WEEK
     Route: 065
  20. ACENOCOUMAROL [Interacting]
     Active Substance: ACENOCOUMAROL
     Dosage: 20 MG/ WEEK
     Route: 065
  21. LISINOPRIL. [Concomitant]
     Active Substance: LISINOPRIL
     Dosage: 5 MG, QD
     Route: 065

REACTIONS (4)
  - Anticoagulation drug level below therapeutic [Recovered/Resolved]
  - Alopecia [Unknown]
  - Drug interaction [Unknown]
  - Asthenia [Unknown]
